FAERS Safety Report 9812325 (Version 1)
Quarter: 2014Q1

REPORT INFORMATION
  Report Type: Spontaneous
  Country: US (occurrence: US)
  Receive Date: 20140113
  Receipt Date: 20140113
  Transmission Date: 20141002
  Serious: Yes (Death)
  Sender: FDA-Public Use
  Company Number: US-ASTRAZENECA-2014SE01790

PATIENT
  Age: 61 Year
  Sex: Male

DRUGS (6)
  1. OMEPRAZOLE [Suspect]
     Route: 048
  2. BUMETANIDE [Suspect]
  3. CARDIAC GLYCOSIDE [Suspect]
  4. INSULIN [Suspect]
  5. IRON [Suspect]
  6. FOLIC ACID [Suspect]

REACTIONS (2)
  - Toxicity to various agents [Fatal]
  - Completed suicide [Fatal]
